FAERS Safety Report 16274300 (Version 1)
Quarter: 2019Q2

REPORT INFORMATION
  Report Type: Other
  Country: CA (occurrence: CA)
  Receive Date: 20190506
  Receipt Date: 20190506
  Transmission Date: 20190711
  Serious: Yes (Other)
  Sender: FDA-Public Use
  Company Number: CA-APOTEX-2019AP013043

PATIENT
  Sex: Female

DRUGS (1)
  1. METFORMIN [Suspect]
     Active Substance: METFORMIN HYDROCHLORIDE
     Indication: TYPE 2 DIABETES MELLITUS
     Dosage: 500 MG, UNK
     Route: 048

REACTIONS (6)
  - Hyperhidrosis [Recovering/Resolving]
  - Product substitution issue [Recovering/Resolving]
  - Oliguria [Recovering/Resolving]
  - Headache [Recovering/Resolving]
  - Gastric dilatation [Recovering/Resolving]
  - Hyperglycaemia [Recovering/Resolving]
